FAERS Safety Report 25803767 (Version 1)
Quarter: 2025Q3

REPORT INFORMATION
  Report Type: Spontaneous
  Country: US (occurrence: None)
  Receive Date: 20250913
  Receipt Date: 20250913
  Transmission Date: 20251021
  Serious: No
  Sender: FDA-CTU
  Company Number: None

PATIENT
  Sex: Female

DRUGS (1)
  1. TERIPARATIDE [Suspect]
     Active Substance: TERIPARATIDE
     Indication: Senile osteoporosis
     Dosage: 20 UG MICROGRAM(S) DAILY SUBCUTAENOUS
     Route: 058
     Dates: start: 20250613

REACTIONS (8)
  - Overdose [None]
  - Product packaging quantity issue [None]
  - Erythema [None]
  - Blood pressure increased [None]
  - Nausea [None]
  - Vomiting [None]
  - Asthenia [None]
  - Feeling cold [None]
